FAERS Safety Report 10814347 (Version 1)
Quarter: 2015Q1

REPORT INFORMATION
  Report Type: Report from Study
  Country: US (occurrence: US)
  Receive Date: 20150218
  Receipt Date: 20150218
  Transmission Date: 20150721
  Serious: No
  Sender: FDA-Public Use
  Company Number: US-ABBVIE-14K-163-1277538-00

PATIENT
  Age: 45 Year
  Sex: Female
  Weight: 135.29 kg

DRUGS (1)
  1. HUMIRA [Suspect]
     Active Substance: ADALIMUMAB
     Indication: PSORIASIS
     Dates: start: 2006

REACTIONS (4)
  - Drug dose omission [Recovered/Resolved]
  - Gastroenteritis viral [Not Recovered/Not Resolved]
  - Nasal congestion [Not Recovered/Not Resolved]
  - Vomiting [Not Recovered/Not Resolved]

NARRATIVE: CASE EVENT DATE: 201408
